FAERS Safety Report 11198269 (Version 3)
Quarter: 2016Q2

REPORT INFORMATION
  Report Type: Spontaneous
  Country: CA (occurrence: CA)
  Receive Date: 20150618
  Receipt Date: 20160513
  Transmission Date: 20160815
  Serious: No
  Sender: FDA-Public Use
  Company Number: CA-ROCHE-1594050

PATIENT
  Age: 68 Year
  Sex: Female

DRUGS (7)
  1. XOLAIR [Suspect]
     Active Substance: OMALIZUMAB
     Route: 058
     Dates: start: 20140807
  2. XOLAIR [Suspect]
     Active Substance: OMALIZUMAB
     Indication: ASTHMA
     Route: 058
     Dates: start: 20100106
  3. ADVAIR HFA [Concomitant]
     Active Substance: FLUTICASONE PROPIONATE\SALMETEROL XINAFOATE
  4. XOLAIR [Suspect]
     Active Substance: OMALIZUMAB
     Route: 058
     Dates: start: 20160428
  5. VENTOLIN [Concomitant]
     Active Substance: ALBUTEROL SULFATE
  6. FLONASE [Concomitant]
     Active Substance: FLUTICASONE PROPIONATE
  7. PREDNISONE. [Concomitant]
     Active Substance: PREDNISONE

REACTIONS (12)
  - Hypersensitivity [Unknown]
  - Lower respiratory tract congestion [Unknown]
  - Rhonchi [Unknown]
  - Sputum discoloured [Unknown]
  - Dyspnoea [Unknown]
  - Productive cough [Unknown]
  - Fatigue [Unknown]
  - Sneezing [Unknown]
  - Wheezing [Unknown]
  - Blood pressure systolic increased [Unknown]
  - Nasopharyngitis [Recovering/Resolving]
  - Somnolence [Unknown]

NARRATIVE: CASE EVENT DATE: 20140807
